FAERS Safety Report 5868349-3 (Version None)
Quarter: 2008Q3

REPORT INFORMATION
  Report Type: 
  Country: None (occurrence: None)
  Receive Date: 20080902
  Receipt Date: 20080902
  Transmission Date: 20090109
  Serious: Yes (Other)
  Sender: FDA-Public Use
  Company Number: None

PATIENT
  Sex: Female
  Weight: 80.7403 kg

DRUGS (1)
  1. METOPROLOL SUCCINATE [Suspect]
     Indication: BLOOD PRESSURE
     Dosage: 25MG  1.5 TABS/QD  (O)
     Route: 048
     Dates: start: 20060101, end: 20070101

REACTIONS (6)
  - ARRHYTHMIA [None]
  - BLADDER PAIN [None]
  - MYALGIA [None]
  - PAIN [None]
  - RENAL PAIN [None]
  - VENTRICULAR EXTRASYSTOLES [None]
